FAERS Safety Report 5711507-9 (Version None)
Quarter: 2008Q2

REPORT INFORMATION
  Report Type: 
  Country: None (occurrence: None)
  Receive Date: 20080421
  Receipt Date: 20080411
  Transmission Date: 20081010
  Serious: Yes (Other)
  Sender: FDA-Public Use
  Company Number: AR-ABBOTT-08P-007-0446915-00

PATIENT
  Sex: Male
  Weight: 73 kg

DRUGS (12)
  1. HUMIRA [Suspect]
     Indication: RHEUMATOID ARTHRITIS
     Route: 058
     Dates: start: 20080213, end: 20080326
  2. METHOTREXATE [Suspect]
     Indication: RHEUMATOID ARTHRITIS
     Route: 048
     Dates: start: 20080213, end: 20080326
  3. ENALAPRIL MALEATE [Concomitant]
     Indication: HYPERTENSION
     Dates: start: 19970101
  4. ACETYLSALICYLIC ACID SRT [Concomitant]
     Indication: CARDIOVASCULAR EVENT PROPHYLAXIS
     Dates: start: 19970101
  5. REDUPROST [Concomitant]
     Indication: BENIGN PROSTATIC HYPERPLASIA
     Dates: start: 19970101
  6. IBUPROFEN [Concomitant]
     Indication: RHEUMATOID ARTHRITIS
     Dates: start: 20071201
  7. CLONIXIN [Concomitant]
     Indication: RHEUMATOID ARTHRITIS
     Dates: start: 20071201
  8. DEXANERAL [Concomitant]
     Indication: RHEUMATOID ARTHRITIS
     Dates: start: 20080130
  9. FOLIC ACID [Concomitant]
     Indication: RHEUMATOID ARTHRITIS
     Dates: start: 20080216
  10. NORFLOXACIN [Concomitant]
     Indication: PROSTATITIS
     Dates: start: 20080328, end: 20080401
  11. DIOCAM [Concomitant]
     Indication: ANXIETY
     Dates: start: 20080404
  12. ISONIAZID [Concomitant]
     Indication: ANTIBIOTIC PROPHYLAXIS
     Dates: start: 20080130

REACTIONS (1)
  - ALVEOLITIS ALLERGIC [None]
